FAERS Safety Report 10025223 (Version 1)
Quarter: 2014Q1

REPORT INFORMATION
  Report Type: Spontaneous
  Country: US (occurrence: None)
  Receive Date: 20140319
  Receipt Date: 20140319
  Transmission Date: 20141002
  Serious: Yes (Hospitalization)
  Sender: FDA-Public Use
  Company Number: None

PATIENT
  Age: 10 Year
  Sex: Female
  Weight: 60.6 kg

DRUGS (1)
  1. PREDNISONE [Suspect]
     Dates: end: 20140309

REACTIONS (4)
  - Musculoskeletal pain [None]
  - Gastric ulcer perforation [None]
  - Wound dehiscence [None]
  - Impaired healing [None]
